FAERS Safety Report 15237379 (Version 2)
Quarter: 2018Q3

REPORT INFORMATION
  Report Type: Spontaneous
  Country: US (occurrence: US)
  Receive Date: 20180803
  Receipt Date: 20180904
  Transmission Date: 20181010
  Serious: No
  Sender: FDA-Public Use
  Company Number: US-MYLANLABS-2018M1058090

PATIENT
  Sex: Male

DRUGS (1)
  1. LORAZEPAM MYLAN [Suspect]
     Active Substance: LORAZEPAM
     Indication: LUNG DISORDER
     Dosage: UNK

REACTIONS (2)
  - Nausea [Unknown]
  - Headache [Unknown]
